FAERS Safety Report 9240939 (Version 1)
Quarter: 2013Q2

REPORT INFORMATION
  Report Type: Spontaneous
  Country: US (occurrence: US)
  Receive Date: 20130418
  Receipt Date: 20130418
  Transmission Date: 20140414
  Serious: No
  Sender: FDA-Public Use
  Company Number: US-SANOFI-AVENTIS-2013SA010747

PATIENT
  Age: 69 Year
  Sex: Female

DRUGS (2)
  1. ENOXAPARIN SODIUM - WINTHROP [Suspect]
     Indication: JUGULAR VEIN THROMBOSIS
     Dates: start: 20130204
  2. DRUG USED IN DIABETES [Concomitant]

REACTIONS (1)
  - Blood glucose increased [Not Recovered/Not Resolved]
